FAERS Safety Report 6644060-6 (Version None)
Quarter: 2010Q1

REPORT INFORMATION
  Report Type: 
  Country: None (occurrence: None)
  Receive Date: 20100322
  Receipt Date: 20100309
  Transmission Date: 20100710
  Serious: Yes (Hospitalization)
  Sender: FDA-Public Use
  Company Number: NO-ELI_LILLY_AND_COMPANY-NO201003003497

PATIENT
  Age: 42 Year
  Sex: Female

DRUGS (9)
  1. FLUOXETINE HYDROCHLORIDE [Suspect]
     Dosage: 40 MG, DAILY (1/D)
     Route: 048
     Dates: start: 20040101
  2. FLUOXETINE HYDROCHLORIDE [Suspect]
     Dosage: 800 MG, DAILY (1/D)
     Route: 048
  3. FLUOXETINE HYDROCHLORIDE [Suspect]
     Dosage: UNK, DAILY (1/D)
     Route: 048
  4. SERTINDOLE [Concomitant]
     Dosage: 16 MG, DAILY (1/D)
     Route: 048
  5. SERTINDOLE [Concomitant]
     Dosage: 1792 MG, DAILY (1/D)
     Route: 048
  6. SERTINDOLE [Concomitant]
     Dosage: UNK, DAILY (1/D)
     Route: 048
  7. LITHIUM [Concomitant]
     Indication: SCHIZOAFFECTIVE DISORDER
     Dosage: 83 MG, DAILY (1/D)
  8. LITHIUM [Concomitant]
     Dosage: UNK, DAILY (1/D)
  9. ZOPLICONE [Concomitant]
     Route: 048

REACTIONS (5)
  - LEUKOCYTOSIS [None]
  - LUNG DISORDER [None]
  - MULTIPLE DRUG OVERDOSE INTENTIONAL [None]
  - SOMNOLENCE [None]
  - SUICIDE ATTEMPT [None]
